FAERS Safety Report 15587039 (Version 1)
Quarter: 2018Q4

REPORT INFORMATION
  Report Type: Spontaneous
  Country: US (occurrence: US)
  Receive Date: 20181105
  Receipt Date: 20181105
  Transmission Date: 20190205
  Serious: No
  Sender: FDA-Public Use
  Company Number: US-ARALEZ PHARMACEUTICALS R+D INC.-2018-ARA-002661

PATIENT

DRUGS (12)
  1. PLAVIX [Concomitant]
     Active Substance: CLOPIDOGREL BISULFATE
     Indication: CEREBROVASCULAR ACCIDENT
     Dosage: UNK
     Route: 048
     Dates: start: 2013
  2. LYNPARZA [Concomitant]
     Active Substance: OLAPARIB
     Indication: OVARIAN CANCER
     Dosage: 300 MG, BID
     Route: 048
     Dates: end: 20180531
  3. LYNPARZA [Concomitant]
     Active Substance: OLAPARIB
     Dosage: 250 MG, BID
     Route: 048
     Dates: start: 20180531, end: 20180621
  4. LASIX [Concomitant]
     Active Substance: FUROSEMIDE
     Indication: DIURETIC THERAPY
     Dosage: UNK
     Route: 048
     Dates: start: 2015
  5. METOPROLOL SUCCINATE. [Suspect]
     Active Substance: METOPROLOL SUCCINATE
     Indication: HYPERTENSION
     Dosage: 25 MG, BID
     Route: 048
     Dates: start: 2017
  6. LOSARTAN. [Concomitant]
     Active Substance: LOSARTAN
     Indication: BLOOD PRESSURE ABNORMAL
     Dosage: UNK
     Route: 048
     Dates: start: 2011
  7. RANITIDINE. [Concomitant]
     Active Substance: RANITIDINE
     Indication: NAUSEA
     Dosage: UNK
     Route: 048
     Dates: start: 2016
  8. LYNPARZA [Concomitant]
     Active Substance: OLAPARIB
     Dosage: 200 MG, BID
     Route: 048
     Dates: start: 20180621, end: 20180717
  9. LYNPARZA [Concomitant]
     Active Substance: OLAPARIB
     Dosage: 100 MG, BID
     Route: 048
     Dates: start: 20180717
  10. ATORVASTATIN [Concomitant]
     Active Substance: ATORVASTATIN
     Indication: BLOOD CHOLESTEROL
     Dosage: UNK
     Route: 048
     Dates: start: 1998
  11. ASPIRIN                            /00002701/ [Concomitant]
     Active Substance: ASPIRIN
     Indication: SUPPLEMENTATION THERAPY
     Dosage: UNK
     Route: 048
     Dates: start: 2015
  12. MAGNESIUM [Concomitant]
     Active Substance: MAGNESIUM
     Indication: SUPPLEMENTATION THERAPY
     Dosage: UNK
     Route: 048
     Dates: start: 2016

REACTIONS (1)
  - Inappropriate schedule of product administration [Recovered/Resolved]

NARRATIVE: CASE EVENT DATE: 2017
